FAERS Safety Report 8745694 (Version 3)
Quarter: 2012Q4

REPORT INFORMATION
  Report Type: 
  Country: NL (occurrence: NL)
  Receive Date: 20120827
  Receipt Date: 20120919
  Transmission Date: 20130627
  Serious: Yes (Other)
  Sender: FDA-Public Use
  Company Number: NL-AMGEN-NLDSP2012053191

PATIENT
  Age: 47 Year
  Sex: Female

DRUGS (7)
  1. NEULASTA [Suspect]
     Indication: CHEMOTHERAPY
     Dosage: 6 mg, q3wk
     Route: 058
     Dates: start: 20120731
  2. DEXAMETHASONE [Concomitant]
  3. EMEND                              /01627301/ [Concomitant]
  4. METOCLOPRAMIDE [Concomitant]
  5. CIPROFLOXACIN [Concomitant]
  6. PARACETAMOL [Concomitant]
  7. ANTINEOPLASTIC AGENTS [Concomitant]
     Indication: BREAST CANCER

REACTIONS (2)
  - Musculoskeletal disorder [Unknown]
  - Bone pain [Recovered/Resolved]
